FAERS Safety Report 8281940-2 (Version None)
Quarter: 2012Q2

REPORT INFORMATION
  Report Type: 
  Country: None (occurrence: None)
  Receive Date: 20120413
  Receipt Date: 20120404
  Transmission Date: 20120825
  Serious: Yes (Other)
  Sender: FDA-Public Use
  Company Number: CA-JNJFOC-20120402351

PATIENT
  Sex: Female

DRUGS (1)
  1. REMICADE [Suspect]
     Indication: CROHN'S DISEASE
     Route: 042
     Dates: end: 20120105

REACTIONS (8)
  - PULMONARY THROMBOSIS [None]
  - DECREASED APPETITE [None]
  - TRISMUS [None]
  - MYALGIA [None]
  - SWELLING [None]
  - ASTHENIA [None]
  - MUSCULOSKELETAL STIFFNESS [None]
  - NECK PAIN [None]
